FAERS Safety Report 16685200 (Version 1)
Quarter: 2019Q3

REPORT INFORMATION
  Report Type: Spontaneous
  Country: JP (occurrence: JP)
  Receive Date: 20190808
  Receipt Date: 20190808
  Transmission Date: 20191004
  Serious: Yes (Other)
  Sender: FDA-Public Use
  Company Number: PHHY2019JP181261

PATIENT
  Age: 57 Year
  Sex: Male

DRUGS (4)
  1. LEVOFLOXACIN. [Suspect]
     Active Substance: LEVOFLOXACIN
     Indication: ANTIBIOTIC THERAPY
     Dosage: 500 MG, QD
     Route: 065
  2. FAROPENEM [Suspect]
     Active Substance: FAROPENEM
     Indication: ANTIBIOTIC THERAPY
     Dosage: 600 MG, QD
     Route: 065
  3. MEROPENEM. [Suspect]
     Active Substance: MEROPENEM
     Indication: BACTERIAL PROSTATITIS
     Dosage: 1.5 MG, QD
     Route: 065
  4. CEFAZOLIN [Suspect]
     Active Substance: CEFAZOLIN
     Indication: PYREXIA
     Dosage: 1 G, UNK
     Route: 065

REACTIONS (3)
  - Pyrexia [Unknown]
  - Pathogen resistance [Unknown]
  - Escherichia infection [Unknown]
